FAERS Safety Report 14952377 (Version 3)
Quarter: 2018Q3

REPORT INFORMATION
  Report Type: Spontaneous
  Country: US (occurrence: US)
  Receive Date: 20180530
  Receipt Date: 20180827
  Transmission Date: 20181010
  Serious: No
  Sender: FDA-Public Use
  Company Number: US-PFIZER INC-2018215086

PATIENT
  Age: 65 Year
  Sex: Female

DRUGS (9)
  1. HYDROCHLOROTHIAZIDE. [Concomitant]
     Active Substance: HYDROCHLOROTHIAZIDE
     Dosage: 12.5 MG, 1X/DAY
     Dates: start: 20171226
  2. LEVOTHYROXINE SODIUM. [Concomitant]
     Active Substance: LEVOTHYROXINE SODIUM
     Indication: HYPOTHYROIDISM
     Dosage: 150 UG, 1X/DAY
     Dates: start: 1985
  3. IBRANCE [Suspect]
     Active Substance: PALBOCICLIB
     Indication: BONE CANCER
     Dosage: 125 MG, CYCLIC (1X DAY FOR 21 DAYS, OFF FOR 7 DAYS)
  4. XGEVA [Concomitant]
     Active Substance: DENOSUMAB
     Indication: BONE CANCER
     Dosage: 1.7 ML, MONTHLY (1X EVERY 4 WEEKS)
     Dates: start: 20180731
  5. FASLODEX [Concomitant]
     Active Substance: FULVESTRANT
     Indication: BONE CANCER
     Dosage: 10 ML, MONTHLY (1X EVERY 4 WEEKS)
     Dates: start: 20180424
  6. TAMOXIFEN [Concomitant]
     Active Substance: TAMOXIFEN
     Indication: BREAST CANCER
     Dosage: 20 MG, 1X/DAY
     Dates: start: 20140925
  7. LOSARTAN. [Concomitant]
     Active Substance: LOSARTAN
     Dosage: 50 MG, 1X/DAY
     Dates: start: 20150402
  8. IBRANCE [Suspect]
     Active Substance: PALBOCICLIB
     Dosage: 20 MG, CYCLIC (ONCE A DAY FOR 21 DAYS, OFF FOR 7 DAYS )
     Dates: start: 20180508
  9. ATENOLOL. [Concomitant]
     Active Substance: ATENOLOL
     Dosage: 50 MG, 1X/DAY
     Dates: start: 20150502

REACTIONS (9)
  - Arthropathy [Not Recovered/Not Resolved]
  - Musculoskeletal pain [Unknown]
  - Product use in unapproved indication [Unknown]
  - Somnolence [Unknown]
  - Back pain [Unknown]
  - Pain in extremity [Unknown]
  - Condition aggravated [Unknown]
  - Arthralgia [Unknown]
  - Fatigue [Recovering/Resolving]

NARRATIVE: CASE EVENT DATE: 201805
